FAERS Safety Report 6497083-4 (Version None)
Quarter: 2009Q4

REPORT INFORMATION
  Report Type: 
  Country: None (occurrence: None)
  Receive Date: 20091215
  Receipt Date: 20090330
  Transmission Date: 20100525
  Serious: No
  Sender: FDA-Public Use
  Company Number: A0770684A

PATIENT
  Age: 76 Year
  Sex: Male

DRUGS (7)
  1. AVODART [Suspect]
     Indication: BENIGN PROSTATIC HYPERPLASIA
     Dosage: .5MG PER DAY
     Route: 048
     Dates: start: 20090101, end: 20090225
  2. FLOMAX [Concomitant]
  3. AMARYL [Concomitant]
  4. ALTACE [Concomitant]
  5. AVALIDE [Concomitant]
  6. CRESTOR [Concomitant]
  7. LYRICA [Concomitant]

REACTIONS (2)
  - PRURITUS [None]
  - RASH [None]
